FAERS Safety Report 8975777 (Version 2)
Quarter: 2013Q1

REPORT INFORMATION
  Report Type: Report from Study
  Country: US (occurrence: US)
  Receive Date: 20121219
  Receipt Date: 20130121
  Transmission Date: 20140127
  Serious: Yes (Other)
  Sender: FDA-Public Use
  Company Number: US-ABBOTT-12P-163-1021330-00

PATIENT
  Sex: Female

DRUGS (2)
  1. HUMIRA [Suspect]
     Indication: PSORIASIS
     Route: 058
     Dates: start: 201201, end: 201212
  2. HUMIRA [Suspect]

REACTIONS (3)
  - Lentigo [Unknown]
  - Surgery [Unknown]
  - Impaired healing [Unknown]
